FAERS Safety Report 9733747 (Version 3)
Quarter: 2014Q1

REPORT INFORMATION
  Report Type: Spontaneous
  Country: BR (occurrence: BR)
  Receive Date: 20131205
  Receipt Date: 20140210
  Transmission Date: 20141002
  Serious: Yes (Hospitalization, Other)
  Sender: FDA-Public Use
  Company Number: PHHY2013BR141929

PATIENT
  Age: 71 Year
  Sex: Male
  Weight: 95 kg

DRUGS (7)
  1. FORASEQ [Suspect]
     Indication: LUNG DISORDER
     Dosage: 1 DF, BID (IN THE MORNING AND AT NIGHT)
     Route: 055
  2. FORASEQ [Suspect]
     Dosage: 1 DF, BID (IN THE MORNING AND AT NIGHT)
     Route: 055
     Dates: start: 20131126
  3. MONOCORDIL [Concomitant]
     Dosage: 3 DF, DAILY
     Route: 048
     Dates: start: 20131126
  4. FUROSEMIDE [Concomitant]
     Indication: DIURETIC THERAPY
     Dosage: 1 DF, DAILY
     Route: 048
     Dates: start: 20131126
  5. RENITEC                                 /NET/ [Concomitant]
     Dosage: 2 DF, DAILY
     Route: 048
     Dates: start: 20131126
  6. MAREVAN [Concomitant]
     Indication: HYPERTENSION
     Dosage: 1 DF, DAILY
     Route: 048
     Dates: start: 20131126
  7. ALDACTONE [Concomitant]
     Dosage: 1 DF, DAILY
     Route: 048
     Dates: start: 20131126

REACTIONS (7)
  - Emphysema [Recovering/Resolving]
  - Pneumonia [Recovering/Resolving]
  - Muscle hypertrophy [Not Recovered/Not Resolved]
  - Cardiac failure [Not Recovered/Not Resolved]
  - Thrombosis [Recovering/Resolving]
  - Pulmonary oedema [Unknown]
  - Localised infection [Recovering/Resolving]
